FAERS Safety Report 12665418 (Version 1)
Quarter: 2016Q3

REPORT INFORMATION
  Report Type: Report from Study
  Country: BR (occurrence: BR)
  Receive Date: 20160818
  Receipt Date: 20160818
  Transmission Date: 20161109
  Serious: Yes (Other)
  Sender: FDA-Public Use
  Company Number: PHHY2016BR104013

PATIENT
  Sex: Female
  Weight: 72 kg

DRUGS (10)
  1. FORASEQ [Suspect]
     Active Substance: BUDESONIDE\FORMOTEROL FUMARATE
     Dosage: 1 DF, BID (FORMOTEROL FUMARATE 400 UG, BUDESONIDE 12 UG)
     Route: 055
  2. FORASEQ [Suspect]
     Active Substance: BUDESONIDE\FORMOTEROL FUMARATE
     Indication: CHRONIC OBSTRUCTIVE PULMONARY DISEASE
     Dosage: 1 DF, BID (FORMOTEROL FUMARATE 400 UG, BUDESONIDE 12 UG)
     Route: 055
  3. CARDIZEM [Concomitant]
     Active Substance: DILTIAZEM HYDROCHLORIDE
     Indication: TENSION
  4. PERIDAL//DOMPERIDONE [Concomitant]
     Indication: GASTRITIS
     Dosage: 1 DF, QD
     Route: 048
  5. FORASEQ [Suspect]
     Active Substance: BUDESONIDE\FORMOTEROL FUMARATE
     Dosage: 1 DF, BID (FORMOTEROL FUMARATE 200 UG, BUDESONIDE 12 UG)
     Route: 055
  6. SUSTRATE [Concomitant]
     Active Substance: PROPATYL NITRATE
     Indication: VEIN DISORDER
     Dosage: 1 DF, QD (STARTED 3 YEARS AGO)
     Route: 048
  7. SOMALGIN [Concomitant]
     Active Substance: ASPIRIN\DIHYDROXYALUMINUM AMINOACETATE ANHYDROUS\MAGNESIUM CARBONATE
     Indication: VEIN DISORDER
     Dosage: 1 DF, UNK
     Route: 065
     Dates: start: 2002
  8. SUSTRATE [Concomitant]
     Active Substance: PROPATYL NITRATE
     Indication: TENSION
  9. SOMALGIN [Concomitant]
     Active Substance: ASPIRIN\DIHYDROXYALUMINUM AMINOACETATE ANHYDROUS\MAGNESIUM CARBONATE
     Indication: TENSION
  10. CARDIZEM [Concomitant]
     Active Substance: DILTIAZEM HYDROCHLORIDE
     Indication: VEIN DISORDER
     Dosage: 2 DF, QD (STARTED 12 YEARS AGO)
     Route: 048

REACTIONS (10)
  - Infarction [Recovered/Resolved]
  - Infarction [Recovered/Resolved]
  - Hypersomnia [Recovered/Resolved]
  - Dyspnoea [Recovered/Resolved]
  - Blood cholesterol increased [Not Recovered/Not Resolved]
  - Drug ineffective [Unknown]
  - Feeling abnormal [Unknown]
  - Bronchitis [Recovered/Resolved]
  - Concomitant disease aggravated [Recovered/Resolved]
  - Infarction [Recovered/Resolved]

NARRATIVE: CASE EVENT DATE: 2012
